FAERS Safety Report 15227355 (Version 1)
Quarter: 2018Q3

REPORT INFORMATION
  Report Type: Spontaneous
  Country: US (occurrence: US)
  Receive Date: 20180801
  Receipt Date: 20180801
  Transmission Date: 20181010
  Serious: No
  Sender: FDA-Public Use
  Company Number: US-BAYER-2018-137532

PATIENT
  Sex: Female
  Weight: 50 kg

DRUGS (3)
  1. CLARITIN [Suspect]
     Active Substance: LORATADINE
     Dosage: 1 WHEN NEEDED
     Route: 048
     Dates: end: 20180719
  2. CLARITIN [Suspect]
     Active Substance: LORATADINE
     Route: 048
  3. BENADRYL [ACRIVASTINE] [Concomitant]
     Active Substance: ACRIVASTINE

REACTIONS (2)
  - Drug ineffective [Unknown]
  - Product use in unapproved indication [Unknown]
